FAERS Safety Report 6543523-1 (Version None)
Quarter: 2010Q1

REPORT INFORMATION
  Report Type: 
  Country: None (occurrence: None)
  Receive Date: 20100120
  Receipt Date: 20100115
  Transmission Date: 20100710
  Serious: Yes (Other)
  Sender: FDA-Public Use
  Company Number: B0627004A

PATIENT
  Sex: Male
  Weight: 89 kg

DRUGS (6)
  1. LAMICTAL [Suspect]
     Indication: EPILEPSY
     Dosage: 50MG TWICE PER DAY
     Route: 048
     Dates: start: 20090501
  2. ACETYLSALICYLZUUR [Concomitant]
     Dosage: 80MG PER DAY
     Route: 048
     Dates: start: 19970101
  3. PRAVASTATIN [Concomitant]
     Dosage: 40MG PER DAY
     Route: 048
     Dates: start: 19970101
  4. TAMSULOSINE [Concomitant]
     Dosage: .4MG PER DAY
     Route: 048
     Dates: start: 19970101
  5. PAROXETINE HCL [Concomitant]
     Dosage: 20MG PER DAY
     Route: 048
  6. ALENDRONIC ACID [Concomitant]
     Dosage: 70MG WEEKLY
     Route: 048
     Dates: start: 20010101

REACTIONS (3)
  - AGEUSIA [None]
  - ANOSMIA [None]
  - SENSORY LOSS [None]
